FAERS Safety Report 13202497 (Version 1)
Quarter: 2017Q1

REPORT INFORMATION
  Report Type: Spontaneous
  Country: TW (occurrence: TW)
  Receive Date: 20170208
  Receipt Date: 20170208
  Transmission Date: 20170428
  Serious: Yes (Hospitalization, Other)
  Sender: FDA-Public Use
  Company Number: TW-PFIZER INC-2017054279

PATIENT
  Age: 25 Year
  Sex: Female

DRUGS (1)
  1. KETAMINE HCL [Suspect]
     Active Substance: KETAMINE HYDROCHLORIDE
     Dosage: 5 MG, DAILY

REACTIONS (3)
  - Cystitis [Recovered/Resolved]
  - Drug abuse [Unknown]
  - Pyelonephritis acute [Recovered/Resolved]
